FAERS Safety Report 8163854-1 (Version None)
Quarter: 2012Q1

REPORT INFORMATION
  Report Type: 
  Country: None (occurrence: None)
  Receive Date: 20120224
  Receipt Date: 20120221
  Transmission Date: 20120608
  Serious: Yes (Death)
  Sender: FDA-Public Use
  Company Number: PHEH2012US004262

PATIENT
  Sex: Male

DRUGS (2)
  1. GLEEVEC [Suspect]
     Dates: start: 20111001
  2. SANDOSTATIN LAR [Suspect]

REACTIONS (1)
  - DEATH [None]
